FAERS Safety Report 9160831 (Version 2)
Quarter: 2013Q1

REPORT INFORMATION
  Report Type: Spontaneous
  Country: GB (occurrence: None)
  Receive Date: 20130220
  Receipt Date: 20130301
  Transmission Date: 20140127
  Serious: Yes (Hospitalization, Other)
  Sender: FDA-Public Use
  Company Number: DE-1196600

PATIENT
  Sex: Male

DRUGS (2)
  1. AZOPT 1 % OPHTHALMIC SUSPENSION (AZOPT 1%) [Suspect]
     Indication: GLAUCOMA
     Route: 047
  2. TAFLOTAN [Suspect]
     Indication: GLAUCOMA

REACTIONS (2)
  - Cardiac fibrillation [None]
  - Blood pressure systolic increased [None]
